FAERS Safety Report 7740061-5 (Version None)
Quarter: 2011Q3

REPORT INFORMATION
  Report Type: 
  Country: None (occurrence: None)
  Receive Date: 20110909
  Receipt Date: 20110831
  Transmission Date: 20111222
  Serious: Yes (Hospitalization)
  Sender: FDA-Public Use
  Company Number: JP-ROCHE-668612

PATIENT
  Sex: Female
  Weight: 54 kg

DRUGS (5)
  1. CEFDINIR [Concomitant]
     Route: 048
  2. AVASTIN [Suspect]
     Indication: RETINAL VEIN OCCLUSION
     Route: 031
     Dates: start: 20090413, end: 20090413
  3. GATIFLOXACIN [Concomitant]
     Route: 047
     Dates: start: 20090401, end: 20090401
  4. AVASTIN [Suspect]
     Route: 031
     Dates: start: 20091019, end: 20091019
  5. OFLOXACIN [Concomitant]
     Route: 047
     Dates: start: 20090401, end: 20090401

REACTIONS (1)
  - PSEUDOENDOPHTHALMITIS [None]
